FAERS Safety Report 14207379 (Version 2)
Quarter: 2017Q4

REPORT INFORMATION
  Report Type: Spontaneous
  Country: US (occurrence: US)
  Receive Date: 20171121
  Receipt Date: 20171128
  Transmission Date: 20180321
  Serious: No
  Sender: FDA-Public Use
  Company Number: US-JNJFOC-20171029287

PATIENT
  Age: 49 Year
  Sex: Male

DRUGS (9)
  1. INVEGA SUSTENNA [Suspect]
     Active Substance: PALIPERIDONE PALMITATE
     Indication: PRODUCT USED FOR UNKNOWN INDICATION
     Dosage: EVERY 28-30 DAYS
     Route: 030
     Dates: start: 20141118
  2. ROSUVASTATIN. [Concomitant]
     Active Substance: ROSUVASTATIN
     Route: 065
  3. TROGLITAZONE [Concomitant]
     Active Substance: TROGLITAZONE
     Route: 065
  4. JANUVIA [Concomitant]
     Active Substance: SITAGLIPTIN PHOSPHATE
     Route: 065
  5. ZETIA [Concomitant]
     Active Substance: EZETIMIBE
     Route: 065
  6. METFORMIN [Concomitant]
     Active Substance: METFORMIN HYDROCHLORIDE
     Route: 065
  7. ASPIRIN. [Concomitant]
     Active Substance: ASPIRIN
     Route: 065
  8. CARVEDILOL. [Concomitant]
     Active Substance: CARVEDILOL
     Route: 065
  9. OMEPRAZOLE. [Concomitant]
     Active Substance: OMEPRAZOLE
     Route: 065

REACTIONS (2)
  - Injection site pruritus [Not Recovered/Not Resolved]
  - Injection site reaction [Recovered/Resolved]

NARRATIVE: CASE EVENT DATE: 20171020
